FAERS Safety Report 7890211-5 (Version None)
Quarter: 2011Q4

REPORT INFORMATION
  Report Type: 
  Country: None (occurrence: None)
  Receive Date: 20111103
  Receipt Date: 20110801
  Transmission Date: 20120403
  Serious: No
  Sender: FDA-Public Use
  Company Number: US-AMGEN-USASP2011029825

PATIENT
  Age: 26 Year
  Sex: Female
  Weight: 90.703 kg

DRUGS (1)
  1. ENBREL [Suspect]
     Indication: PSORIASIS
     Dosage: 50 MG, 2 TIMES/WK
     Dates: start: 20110406

REACTIONS (2)
  - LYMPH NODE PAIN [None]
  - LYMPHADENOPATHY [None]
